FAERS Safety Report 13877110 (Version 3)
Quarter: 2017Q4

REPORT INFORMATION
  Report Type: Spontaneous
  Country: JP (occurrence: JP)
  Receive Date: 20170817
  Receipt Date: 20171020
  Transmission Date: 20180320
  Serious: Yes (Hospitalization, Other)
  Sender: FDA-Public Use
  Company Number: JP-GLAXOSMITHKLINE-JP2017JPN096127

PATIENT
  Age: 72 Year
  Sex: Male
  Weight: 46 kg

DRUGS (13)
  1. LULICON SOLUTION 1% [Concomitant]
     Dosage: UNK
  2. SOLDEM 3A INFUSION [Concomitant]
     Dosage: UNK
  3. ISOTONIC SODIUM CHLORIDE SOLUTION SYRINGE [Concomitant]
     Dosage: UNK
  4. REQUIP [Concomitant]
     Active Substance: ROPINIROLE HYDROCHLORIDE
     Indication: PARKINSON^S DISEASE
     Dosage: 3 MG, 1D
     Dates: start: 20170622, end: 20170626
  5. NIFLAN [Concomitant]
     Active Substance: PRANOPROFEN
     Dosage: UNK
  6. LACTEC [Concomitant]
     Active Substance: CALCIUM CHLORIDE ANHYDROUS\POTASSIUM CHLORIDE\SODIUM CHLORIDE\SODIUM LACTATE
     Dosage: UNK
  7. MAGMITT [Concomitant]
     Active Substance: MAGNESIUM OXIDE
     Dosage: UNK
  8. TAKEPRON INTRAVENOUS [Concomitant]
     Dosage: UNK
  9. SEISHOKU [Concomitant]
     Active Substance: SODIUM CHLORIDE
     Dosage: UNK
  10. SALICYLIC ACID. [Concomitant]
     Active Substance: SALICYLIC ACID
     Dosage: UNK
  11. LULICON CREAM [Concomitant]
     Dosage: UNK
  12. REQUIP [Suspect]
     Active Substance: ROPINIROLE HYDROCHLORIDE
     Indication: PARKINSON^S DISEASE
     Dosage: 8 MG, QD
     Route: 048
     Dates: start: 20170111, end: 20170621
  13. ISOTONIC SODIUM CHLORIDE SOLUTION KIT [Concomitant]
     Dosage: UNK

REACTIONS (12)
  - Asthenia [Recovering/Resolving]
  - Blood pressure decreased [Recovering/Resolving]
  - Hallucination [Recovering/Resolving]
  - Speech disorder [Recovering/Resolving]
  - Abnormal behaviour [Recovering/Resolving]
  - Pneumonia [Recovered/Resolved]
  - Hallucination, visual [Recovered/Resolved]
  - Delirium [Recovered/Resolved]
  - Pyrexia [Recovering/Resolving]
  - Hypotension [Recovering/Resolving]
  - Communication disorder [Recovering/Resolving]
  - Intercepted drug administration error [Unknown]

NARRATIVE: CASE EVENT DATE: 201706
